FAERS Safety Report 9033026 (Version 2)
Quarter: 2013Q1

REPORT INFORMATION
  Report Type: Spontaneous
  Country: KR (occurrence: None)
  Receive Date: 20130110
  Receipt Date: 20130116
  Transmission Date: 20140127
  Serious: Yes (Hospitalization)
  Sender: FDA-Public Use
  Company Number: DSA_61749_2013

PATIENT
  Age: 68 Year
  Sex: Male

DRUGS (1)
  1. METRONIDAZOLE (METRONIDAZOLE) [Suspect]
     Indication: LUNG ABSCESS
     Route: 048

REACTIONS (4)
  - Toxic encephalopathy [None]
  - Gait disturbance [None]
  - Dysarthria [None]
  - Paraesthesia [None]
